FAERS Safety Report 6355967-1 (Version None)
Quarter: 2009Q3

REPORT INFORMATION
  Report Type: 
  Country: None (occurrence: None)
  Receive Date: 20090915
  Receipt Date: 20090903
  Transmission Date: 20100115
  Serious: Yes (Other)
  Sender: FDA-Public Use
  Company Number: GB-AMGEN-US342148

PATIENT
  Age: 55 Year
  Sex: Female

DRUGS (8)
  1. ENBREL [Suspect]
     Indication: RHEUMATOID ARTHRITIS
     Route: 030
     Dates: start: 20090313
  2. CO-CODAMOL [Concomitant]
     Dosage: UNKNOWN
  3. SALBUTAMOL [Concomitant]
     Dosage: UNKNOWN
  4. FLIXOTIDE [Concomitant]
     Dosage: UNKNOWN
  5. FOLIC ACID [Concomitant]
     Dosage: UNKNOWN
  6. METHOTREXATE [Concomitant]
     Dosage: UNKNOWN
  7. AMITRIPTYLINE [Concomitant]
     Dosage: UNKNOWN
  8. ARCOXIA [Concomitant]
     Dosage: UNKNOWN

REACTIONS (2)
  - INCORRECT ROUTE OF DRUG ADMINISTRATION [None]
  - LYMPHADENOPATHY [None]
